FAERS Safety Report 18169854 (Version 1)
Quarter: 2020Q3

REPORT INFORMATION
  Report Type: Spontaneous
  Country: US (occurrence: US)
  Receive Date: 20200819
  Receipt Date: 20200819
  Transmission Date: 20201103
  Serious: No
  Sender: FDA-Public Use
  Company Number: US-GYP-000191

PATIENT
  Age: 71 Year
  Weight: 77.11 kg

DRUGS (1)
  1. PREDNISONE. [Suspect]
     Active Substance: PREDNISONE
     Indication: RHEUMATOID ARTHRITIS
     Dosage: FOUR TABLETS BY MOUTH
     Route: 048
     Dates: start: 201912

REACTIONS (3)
  - Weight increased [Unknown]
  - Cushingoid [Unknown]
  - Increased appetite [Unknown]
